FAERS Safety Report 9274143 (Version 1)
Quarter: 2013Q2

REPORT INFORMATION
  Report Type: Spontaneous
  Country: US (occurrence: US)
  Receive Date: 20130506
  Receipt Date: 20130506
  Transmission Date: 20140414
  Serious: No
  Sender: FDA-Public Use
  Company Number: US-AMGEN-USASP2013028849

PATIENT
  Age: 44 Year
  Sex: Female

DRUGS (2)
  1. ENBREL [Suspect]
     Indication: PSORIATIC ARTHROPATHY
     Dosage: UNK MG, UNK
     Dates: start: 20080115
  2. ENBREL [Suspect]
     Indication: PSORIASIS

REACTIONS (2)
  - Dysuria [Not Recovered/Not Resolved]
  - Psoriasis [Not Recovered/Not Resolved]
